FAERS Safety Report 15367257 (Version 1)
Quarter: 2018Q3

REPORT INFORMATION
  Report Type: Spontaneous
  Country: US (occurrence: US)
  Receive Date: 20180903
  Receipt Date: 20180903
  Transmission Date: 20181010
  Serious: No
  Sender: FDA-Public Use
  Company Number: None

PATIENT
  Age: 32 Year
  Sex: Female
  Weight: 56.25 kg

DRUGS (2)
  1. METHYLPREDNISOLONE. [Suspect]
     Active Substance: METHYLPREDNISOLONE
     Indication: INFLAMMATION
     Dosage: ?          QUANTITY:21 TABLET(S);OTHER FREQUENCY:TAPERED DOSE PACK;?
     Route: 048
     Dates: start: 20180216, end: 20180221
  2. METHYLPREDNISOLONE. [Suspect]
     Active Substance: METHYLPREDNISOLONE
     Indication: SINUS DISORDER
     Dosage: ?          QUANTITY:21 TABLET(S);OTHER FREQUENCY:TAPERED DOSE PACK;?
     Route: 048
     Dates: start: 20180216, end: 20180221

REACTIONS (17)
  - Paranoia [None]
  - Memory impairment [None]
  - Weight decreased [None]
  - Panic attack [None]
  - Insomnia [None]
  - Quality of life decreased [None]
  - Suicidal ideation [None]
  - Stress [None]
  - Gastrooesophageal reflux disease [None]
  - Cognitive disorder [None]
  - Energy increased [None]
  - Palpitations [None]
  - Nausea [None]
  - Depression [None]
  - Irritability [None]
  - Anxiety [None]
  - Crying [None]

NARRATIVE: CASE EVENT DATE: 20180228
